FAERS Safety Report 6390689-2 (Version None)
Quarter: 2009Q4

REPORT INFORMATION
  Report Type: 
  Country: None (occurrence: None)
  Receive Date: 20091003
  Receipt Date: 20090917
  Transmission Date: 20100525
  Serious: Yes (Death, Hospitalization)
  Sender: FDA-Public Use
  Company Number: 2009002632

PATIENT
  Age: 61 Year
  Sex: Male

DRUGS (3)
  1. ERLOTINIB HYDROCHLORIDE [Suspect]
     Indication: NON-SMALL CELL LUNG CANCER
     Dosage: 150 MG, QD, ORAL
     Route: 048
     Dates: start: 20090711, end: 20090722
  2. DOCETAXEL [Suspect]
     Indication: NON-SMALL CELL LUNG CANCER METASTATIC
     Dosage: 130 MG, Q3W, INTRAVENOUS
     Route: 042
     Dates: start: 20090708
  3. GLIMEPIRIDE [Suspect]
     Indication: DIABETES MELLITUS
     Dosage: 4 MG, ORAL
     Route: 048
     Dates: start: 20070101, end: 20090724

REACTIONS (9)
  - BONE PAIN [None]
  - CULTURE URINE POSITIVE [None]
  - CYSTITIS [None]
  - FATIGUE [None]
  - HYPOGLYCAEMIA [None]
  - HYPONATRAEMIA [None]
  - MUSCULOSKELETAL PAIN [None]
  - SEPTIC SHOCK [None]
  - STAPHYLOCOCCAL INFECTION [None]
